FAERS Safety Report 4591133-8 (Version None)
Quarter: 2005Q1

REPORT INFORMATION
  Report Type: 
  Country: None (occurrence: None)
  Receive Date: 20050218
  Receipt Date: 20050204
  Transmission Date: 20050727
  Serious: Yes (Hospitalization)
  Sender: FDA-Public Use
  Company Number: 2004104501

PATIENT
  Age: 33 Year
  Sex: Male

DRUGS (1)
  1. BEXTRA [Suspect]
     Indication: BACK PAIN
     Dosage: 40 MG (40 MG, 1 IN 1 D), ORAL
     Route: 048
     Dates: start: 20041111, end: 20041114

REACTIONS (3)
  - CARDIAC DISORDER [None]
  - CHOLINERGIC SYNDROME [None]
  - CORONARY ARTERY INSUFFICIENCY [None]
